FAERS Safety Report 5558343-4 (Version None)
Quarter: 2007Q4

REPORT INFORMATION
  Report Type: 
  Country: None (occurrence: None)
  Receive Date: 20071130
  Receipt Date: 20070831
  Transmission Date: 20080405
  Serious: No
  Sender: FDA-Public Use
  Company Number: US200708007133

PATIENT
  Age: 53 Year
  Sex: Female
  Weight: 90.7 kg

DRUGS (10)
  1. BYETTA [Suspect]
     Dosage: 5 UG, 2/D, 5 UG, 2/D
     Dates: start: 20050801, end: 20050801
  2. BYETTA [Suspect]
     Dosage: 5 UG, 2/D, 5 UG, 2/D
     Dates: start: 20070830
  3. EXENATIDE 5MCG PEN, DISPOSABLE DEVICE (EXENATIDE PEN (5MCG)) PEN,DISPO [Concomitant]
  4. PIOGLITAZONE HCL [Concomitant]
  5. METFORMIN HCL [Concomitant]
  6. NOVOLIN GE 30/70 (INSULIN, INSULIN INJECTION, ISOPHANE) [Concomitant]
  7. PRAVACHOL [Concomitant]
  8. ATENOLOL [Concomitant]
  9. ZOLOFT [Concomitant]
  10. LANTUS [Concomitant]

REACTIONS (4)
  - BLOOD PRESSURE INCREASED [None]
  - CHEST PAIN [None]
  - DYSPNOEA [None]
  - HEART RATE INCREASED [None]
